FAERS Safety Report 20077697 (Version 1)
Quarter: 2021Q4

REPORT INFORMATION
  Report Type: Report from Study
  Country: IE (occurrence: IE)
  Receive Date: 20211116
  Receipt Date: 20211116
  Transmission Date: 20220304
  Serious: Yes (Hospitalization)
  Sender: FDA-Public Use
  Company Number: IE-AstraZeneca-2021A806795

PATIENT
  Sex: Male

DRUGS (2)
  1. SYNAGIS [Suspect]
     Active Substance: PALIVIZUMAB
     Indication: Wolf-Hirschhorn syndrome
     Dosage: 15MG/KG FOR EVERY 28 DAYS
     Route: 030
     Dates: start: 20211007, end: 2021
  2. SYNAGIS [Suspect]
     Active Substance: PALIVIZUMAB
     Indication: Wolf-Hirschhorn syndrome
     Route: 030
     Dates: start: 20211107

REACTIONS (3)
  - Rhinovirus infection [Unknown]
  - Respiratory disorder [Unknown]
  - Apnoea [Unknown]

NARRATIVE: CASE EVENT DATE: 20210101
